FAERS Safety Report 11640864 (Version 1)
Quarter: 2015Q4

REPORT INFORMATION
  Report Type: Spontaneous
  Country: US (occurrence: None)
  Receive Date: 20151016
  Receipt Date: 20151016
  Transmission Date: 20160304
  Serious: Yes (Hospitalization)
  Sender: FDA-Public Use
  Company Number: None

PATIENT
  Age: 64 Year
  Sex: Male
  Weight: 68.6 kg

DRUGS (1)
  1. WARFARIN [Suspect]
     Active Substance: WARFARIN
     Indication: INTRACARDIAC THROMBUS
     Route: 048
     Dates: start: 20150707, end: 20151009

REACTIONS (3)
  - Haemoptysis [None]
  - Anticoagulation drug level below therapeutic [None]
  - Pneumonia [None]

NARRATIVE: CASE EVENT DATE: 20151009
